FAERS Safety Report 5236747-7 (Version None)
Quarter: 2007Q1

REPORT INFORMATION
  Report Type: 
  Country: None (occurrence: None)
  Receive Date: 20070213
  Receipt Date: 20070131
  Transmission Date: 20070707
  Serious: Yes (Other)
  Sender: FDA-Public Use
  Company Number: PHBS2007JP02145

PATIENT
  Age: 5 Month
  Sex: Female

DRUGS (3)
  1. TEGRETOL [Suspect]
     Indication: EPILEPSY
     Dosage: 30 MG/DAY
     Route: 048
     Dates: end: 20070104
  2. TEGRETOL [Suspect]
     Dosage: 50 MG/DAY
     Route: 048
     Dates: start: 20070105, end: 20070116
  3. TEGRETOL [Suspect]
     Dosage: 60 MG/DAY
     Route: 048
     Dates: start: 20070117, end: 20070119

REACTIONS (5)
  - ECZEMA [None]
  - HAEMATOCHEZIA [None]
  - HAEMORRHAGE SUBCUTANEOUS [None]
  - PLATELET COUNT DECREASED [None]
  - THROMBOCYTOPENIA [None]
